FAERS Safety Report 7226080-6 (Version None)
Quarter: 2011Q1

REPORT INFORMATION
  Report Type: 
  Country: None (occurrence: None)
  Receive Date: 20110113
  Receipt Date: 20110105
  Transmission Date: 20110831
  Serious: Yes (Hospitalization)
  Sender: FDA-Public Use
  Company Number: FR-GENENTECH-305059

PATIENT
  Sex: Male
  Weight: 91 kg

DRUGS (4)
  1. CRESTOR [Concomitant]
     Indication: PRODUCT USED FOR UNKNOWN INDICATION
     Dosage: UNK
     Dates: start: 20100723
  2. BENDAMUSTINE [Suspect]
     Indication: CHRONIC LYMPHOCYTIC LEUKAEMIA
     Dosage: 180 MG, Q28D
     Route: 042
     Dates: start: 20100728
  3. RITUXIMAB [Suspect]
     Indication: CHRONIC LYMPHOCYTIC LEUKAEMIA
     Dosage: 750 MG, Q28D
     Route: 042
     Dates: start: 20100728
  4. PERINDOPRIL [Concomitant]
     Indication: PRODUCT USED FOR UNKNOWN INDICATION
     Dosage: UNK
     Dates: start: 20100723

REACTIONS (6)
  - THROMBOCYTOPENIA [None]
  - COR PULMONALE CHRONIC [None]
  - ANAEMIA [None]
  - RIGHT VENTRICULAR FAILURE [None]
  - PULMONARY OEDEMA [None]
  - HAEMATOMA [None]
